FAERS Safety Report 17680166 (Version 1)
Quarter: 2020Q2

REPORT INFORMATION
  Report Type: Spontaneous
  Country: US (occurrence: US)
  Receive Date: 20200417
  Receipt Date: 20200417
  Transmission Date: 20200714
  Serious: Yes (Life-Threatening)
  Sender: FDA-Public Use
  Company Number: None

PATIENT
  Age: 63 Year
  Sex: Male
  Weight: 123 kg

DRUGS (1)
  1. LISINOPRIL (LISINOPRIL 10MG TAB [Suspect]
     Active Substance: LISINOPRIL
     Indication: HYPERTENSION
     Route: 048
     Dates: start: 20121209, end: 20200124

REACTIONS (2)
  - Angioedema [None]
  - Tongue biting [None]

NARRATIVE: CASE EVENT DATE: 20200124
